FAERS Safety Report 7167191-3 (Version None)
Quarter: 2010Q4

REPORT INFORMATION
  Report Type: 
  Country: None (occurrence: None)
  Receive Date: 20101216
  Receipt Date: 20101205
  Transmission Date: 20110411
  Serious: Yes (Other)
  Sender: FDA-Public Use
  Company Number: PHHY2010CO84064

PATIENT
  Sex: Male

DRUGS (3)
  1. AFINITOR [Suspect]
     Route: 048
  2. CARBAMAZEPINE [Suspect]
  3. VIGABATRIN [Concomitant]

REACTIONS (1)
  - CONVULSION [None]
